FAERS Safety Report 5647447-3 (Version None)
Quarter: 2008Q1

REPORT INFORMATION
  Report Type: 
  Country: None (occurrence: None)
  Receive Date: 20080228
  Receipt Date: 20080215
  Transmission Date: 20080703
  Serious: Yes (Other)
  Sender: FDA-Public Use
  Company Number: 2008004154

PATIENT
  Sex: Male

DRUGS (1)
  1. VISINE A.C. (ZINC SULFATE, TETRYZOLINE) [Suspect]
     Dosage: OPHTHALMIC
     Route: 047

REACTIONS (5)
  - EYE BURNS [None]
  - EYE PAIN [None]
  - HALO VISION [None]
  - NIGHT BLINDNESS [None]
  - VISION BLURRED [None]
